FAERS Safety Report 6873062-X (Version None)
Quarter: 2010Q3

REPORT INFORMATION
  Report Type: 
  Country: None (occurrence: None)
  Receive Date: 20100723
  Receipt Date: 20081119
  Transmission Date: 20110219
  Serious: No
  Sender: FDA-Public Use
  Company Number: US-PFIZER INC-2008099151

PATIENT
  Age: 57 Year
  Sex: Male
  Weight: 113.63 kg

DRUGS (4)
  1. CHANTIX [Suspect]
     Indication: SMOKING CESSATION THERAPY
     Dates: start: 20080101
  2. ANTIBIOTICS [Suspect]
     Indication: INFECTION
     Dates: start: 20080101
  3. WELLBUTRIN [Concomitant]
  4. IBUPROFEN [Concomitant]

REACTIONS (4)
  - DEPRESSION [None]
  - INFECTION [None]
  - NAUSEA [None]
  - SOCIAL AVOIDANT BEHAVIOUR [None]
